FAERS Safety Report 4898120-0 (Version None)
Quarter: 2006Q1

REPORT INFORMATION
  Report Type: 
  Country: None (occurrence: None)
  Receive Date: 20060130
  Receipt Date: 20060116
  Transmission Date: 20060701
  Serious: Yes (Other)
  Sender: FDA-Public Use
  Company Number: 2006008221

PATIENT
  Sex: Female
  Weight: 54.4316 kg

DRUGS (1)
  1. ROGAINE [Suspect]
     Indication: ALOPECIA
     Dosage: 1 ^SHOT^ TWICE DAILY, TOPICAL
     Route: 061
     Dates: start: 20010101, end: 20060101

REACTIONS (1)
  - HEPATITIS [None]
